FAERS Safety Report 24250064 (Version 2)
Quarter: 2024Q3

REPORT INFORMATION
  Report Type: Spontaneous
  Country: IE (occurrence: IE)
  Receive Date: 20240826
  Receipt Date: 20240827
  Transmission Date: 20241016
  Serious: Yes (Disabling)
  Sender: LUNDBECK
  Company Number: IE-HPRA-HMARR-2024070512620

PATIENT

DRUGS (2)
  1. VYEPTI [Suspect]
     Active Substance: EPTINEZUMAB\EPTINEZUMAB-JJMR
     Indication: Migraine
     Route: 041
     Dates: start: 20240617
  2. VYEPTI [Suspect]
     Active Substance: EPTINEZUMAB\EPTINEZUMAB-JJMR
     Route: 041
     Dates: start: 2024

REACTIONS (1)
  - Trigeminal neuritis [Recovered/Resolved]

NARRATIVE: CASE EVENT DATE: 20240101
